FAERS Safety Report 9107546 (Version 1)
Quarter: 2013Q1

REPORT INFORMATION
  Report Type: Spontaneous
  Country: US (occurrence: US)
  Receive Date: 20130221
  Receipt Date: 20130221
  Transmission Date: 20140127
  Serious: Yes (Hospitalization)
  Sender: FDA-Public Use
  Company Number: US-AMGEN-USASP2013011612

PATIENT
  Age: 64 Year
  Sex: Female

DRUGS (1)
  1. ENBREL [Suspect]
     Indication: RHEUMATOID ARTHRITIS
     Dosage: 25 MG, 2 TIMES/WK
     Dates: start: 20010101

REACTIONS (13)
  - Renal failure acute [Not Recovered/Not Resolved]
  - Abasia [Not Recovered/Not Resolved]
  - Aphagia [Not Recovered/Not Resolved]
  - Cystitis [Not Recovered/Not Resolved]
  - Hemiparesis [Not Recovered/Not Resolved]
  - Diarrhoea [Not Recovered/Not Resolved]
  - Nausea [Not Recovered/Not Resolved]
  - Hypoaesthesia [Not Recovered/Not Resolved]
  - Paraesthesia [Not Recovered/Not Resolved]
  - Sinusitis [Not Recovered/Not Resolved]
  - Abdominal discomfort [Recovered/Resolved]
  - Mobility decreased [Recovered/Resolved]
  - Feeling abnormal [Recovered/Resolved]
